FAERS Safety Report 7472310-5 (Version None)
Quarter: 2011Q1

REPORT INFORMATION
  Report Type: 
  Country: None (occurrence: None)
  Receive Date: 20110302
  Receipt Date: 20101109
  Transmission Date: 20110831
  Serious: Yes (Other)
  Sender: FDA-Public Use
  Company Number: 163-21880-10100485

PATIENT
  Age: 88 Year
  Sex: Female

DRUGS (2)
  1. REVLIMID [Suspect]
  2. REVLIMID [Suspect]
     Indication: MYELODYSPLASTIC SYNDROME
     Dosage: 10 MG, DAILY X 21 DAYS, OFF 7 DAYS, PO
     Route: 048
     Dates: start: 20100909, end: 20100928

REACTIONS (6)
  - ORAL PAIN [None]
  - OROPHARYNGEAL PAIN [None]
  - MUSCULAR WEAKNESS [None]
  - BLOOD COUNT ABNORMAL [None]
  - RED BLOOD CELL COUNT DECREASED [None]
  - FATIGUE [None]
